FAERS Safety Report 7269689-6 (Version None)
Quarter: 2011Q1

REPORT INFORMATION
  Report Type: 
  Country: None (occurrence: None)
  Receive Date: 20110124
  Receipt Date: 20110120
  Transmission Date: 20110831
  Serious: Yes (Other)
  Sender: FDA-Public Use
  Company Number: 2011-0003

PATIENT

DRUGS (1)
  1. DOXEPIN [Suspect]

REACTIONS (1)
  - DIABETES MELLITUS [None]
